FAERS Safety Report 7215327-8 (Version None)
Quarter: 2011Q1

REPORT INFORMATION
  Report Type: 
  Country: None (occurrence: None)
  Receive Date: 20110104
  Receipt Date: 20110104
  Transmission Date: 20110831
  Serious: Yes (Life-Threatening)
  Sender: FDA-Public Use
  Company Number: None

PATIENT
  Age: 81 Year
  Sex: Male
  Weight: 55.611 kg

DRUGS (2)
  1. TAZICEF [Suspect]
     Indication: WHITE BLOOD CELL COUNT INCREASED
     Dosage: FORTAZ ONE GRAM Q 8 IVPB
     Route: 040
     Dates: start: 20101227
  2. LEVAQUIN [Suspect]
     Indication: PULMONARY EMBOLISM
     Dosage: DAILY IVPB
     Route: 040
     Dates: start: 20101229

REACTIONS (1)
  - CONVULSION [None]
